FAERS Safety Report 16850982 (Version 1)
Quarter: 2019Q3

REPORT INFORMATION
  Report Type: Spontaneous
  Country: IT (occurrence: IT)
  Receive Date: 20190925
  Receipt Date: 20190925
  Transmission Date: 20191005
  Serious: Yes (Hospitalization)
  Sender: FDA-Public Use
  Company Number: IT-PFIZER INC-2019406882

PATIENT
  Age: 62 Year
  Sex: Female

DRUGS (2)
  1. CEFAZOLIN [Suspect]
     Active Substance: CEFAZOLIN
     Indication: INFECTION
     Dosage: 1 DF, 1X/DAY
     Dates: start: 20190823, end: 20190823
  2. POVIDONE IODIDE [Suspect]
     Active Substance: POVIDONE-IODINE
     Indication: INFECTION PROPHYLAXIS
     Dosage: 1 DF, 1X/DAY
     Route: 061
     Dates: start: 20190823, end: 20190823

REACTIONS (2)
  - Anaphylactic shock [Recovering/Resolving]
  - Urticaria [Recovering/Resolving]

NARRATIVE: CASE EVENT DATE: 20190823
